FAERS Safety Report 11340659 (Version 1)
Quarter: 2015Q3

REPORT INFORMATION
  Report Type: Spontaneous
  Country: JP (occurrence: JP)
  Receive Date: 20150805
  Receipt Date: 20150805
  Transmission Date: 20151125
  Serious: Yes (Other)
  Sender: FDA-Public Use
  Company Number: JP-PFIZER INC-2015223326

PATIENT
  Age: 57 Year
  Sex: Female
  Weight: 54 kg

DRUGS (8)
  1. GENINAX [Suspect]
     Active Substance: GARENOXACIN MESYLATE
     Indication: NASAL INFLAMMATION
     Dosage: 400 MG, 1X/DAY
     Route: 048
     Dates: start: 20150625, end: 20150628
  2. LYRICA [Suspect]
     Active Substance: PREGABALIN
     Indication: NEURALGIA
     Dosage: 75 MG, SINGLE
     Route: 048
     Dates: start: 20150629, end: 20150629
  3. PITAVASTATIN CALCIUM [Suspect]
     Active Substance: PITAVASTATIN CALCIUM
     Indication: DYSLIPIDAEMIA
     Dosage: 1 MG, 1X/DAY
     Route: 048
     Dates: start: 20091127
  4. PREDNISOLONE. [Suspect]
     Active Substance: PREDNISOLONE
     Indication: HERPES ZOSTER
     Dosage: 10 MG, 2X/DAY
     Route: 048
     Dates: start: 20150625, end: 20150628
  5. PREDNISOLONE. [Suspect]
     Active Substance: PREDNISOLONE
     Dosage: 10 MG, 1X/DAY
     Route: 048
     Dates: start: 20150629, end: 20150702
  6. PREDNISOLONE. [Suspect]
     Active Substance: PREDNISOLONE
     Dosage: 5 MG, 1X/DAY
     Route: 048
     Dates: start: 20150703, end: 20150713
  7. VEGAMOX [Concomitant]
     Active Substance: MOXIFLOXACIN HYDROCHLORIDE
     Indication: CONJUNCTIVITIS
     Dosage: 3 OR 4 DROPS, DAILY
     Route: 047
     Dates: start: 20150629, end: 20150713
  8. ZOLPIDEM TARTRATE. [Concomitant]
     Active Substance: ZOLPIDEM TARTRATE
     Indication: INSOMNIA
     Dosage: 5 MG, ONCE DAILY AS NEEDED
     Route: 048
     Dates: start: 20150427

REACTIONS (12)
  - Blood pressure increased [Recovered/Resolved]
  - Nightmare [Recovered/Resolved]
  - Insomnia [Not Recovered/Not Resolved]
  - Disease progression [Recovered/Resolved]
  - Seizure [Recovered/Resolved]
  - Conjunctivitis [Recovered/Resolved]
  - Headache [Recovering/Resolving]
  - Vision blurred [Unknown]
  - Sleep apnoea syndrome [Not Recovered/Not Resolved]
  - Blood creatinine increased [Recovering/Resolving]
  - Head discomfort [Unknown]
  - Herpes zoster [Recovered/Resolved]

NARRATIVE: CASE EVENT DATE: 20121017
